FAERS Safety Report 6821194-4 (Version None)
Quarter: 2010Q3

REPORT INFORMATION
  Report Type: 
  Country: None (occurrence: None)
  Receive Date: 20100707
  Receipt Date: 20100628
  Transmission Date: 20110219
  Serious: Yes (Other)
  Sender: FDA-Public Use
  Company Number: US-AMGEN-QUU421019

PATIENT
  Sex: Female

DRUGS (8)
  1. ENBREL [Suspect]
     Indication: PRODUCT USED FOR UNKNOWN INDICATION
  2. HUMIRA [Suspect]
     Indication: RHEUMATOID ARTHRITIS
     Dates: start: 20050101
  3. CELECOXIB [Concomitant]
  4. CHOLESTEROL- AND TRIGLYCERIDE REDUCERS [Concomitant]
  5. EZETIMIBE [Concomitant]
  6. TRICHLORMETHIAZIDE [Concomitant]
  7. MUSCLE RELAXANTS [Concomitant]
  8. SLEEPING MEDICATION NOS [Concomitant]

REACTIONS (6)
  - DIZZINESS [None]
  - EYE MOVEMENT DISORDER [None]
  - NERVOUS SYSTEM DISORDER [None]
  - NEUROLOGICAL SYMPTOM [None]
  - RASH [None]
  - RHEUMATOID ARTHRITIS [None]
